FAERS Safety Report 12342956 (Version 2)
Quarter: 2016Q3

REPORT INFORMATION
  Report Type: Spontaneous
  Country: DK (occurrence: DK)
  Receive Date: 20160506
  Receipt Date: 20160812
  Transmission Date: 20161109
  Serious: Yes (Hospitalization)
  Sender: FDA-Public Use
  Company Number: DK-TEVA-656802ACC

PATIENT
  Age: 75 Year
  Sex: Male
  Weight: 83 kg

DRUGS (1)
  1. TAMSULOSIN ^TEVA^ [Suspect]
     Active Substance: TAMSULOSIN
     Indication: DYSURIA
     Dosage: .4 MILLIGRAM DAILY; DOSE: 1 CAPSULE AFTER BREAKFAST
     Route: 048
     Dates: start: 20150907, end: 201511

REACTIONS (7)
  - Decreased appetite [Recovered/Resolved]
  - Food aversion [Unknown]
  - Tongue discolouration [Recovered/Resolved]
  - Nausea [Unknown]
  - Dysgeusia [Unknown]
  - Tongue fungal infection [Recovered/Resolved]
  - Weight decreased [Unknown]

NARRATIVE: CASE EVENT DATE: 20150907
